FAERS Safety Report 7372077-5 (Version None)
Quarter: 2011Q1

REPORT INFORMATION
  Report Type: 
  Country: None (occurrence: None)
  Receive Date: 20110324
  Receipt Date: 20110315
  Transmission Date: 20110831
  Serious: Yes (Hospitalization)
  Sender: FDA-Public Use
  Company Number: BR-ASTRAZENECA-2011SE14747

PATIENT
  Age: 81 Year
  Sex: Female
  Weight: 75 kg

DRUGS (7)
  1. ATACAND [Suspect]
     Indication: HYPERTENSION
     Route: 048
     Dates: start: 20090101
  2. DIGESTAL [Concomitant]
     Route: 048
     Dates: start: 20090101
  3. OMEPRAZOLE [Suspect]
     Route: 048
     Dates: start: 20090101
  4. CRESTOR [Suspect]
     Indication: HYPERCHOLESTEROLAEMIA
     Dosage: HALF TABLET ONCE DAILY
     Route: 048
     Dates: start: 20110301
  5. PRESSAT [Concomitant]
     Route: 048
     Dates: start: 20090101
  6. MECLAN [Concomitant]
     Route: 048
     Dates: start: 20090101
  7. ESPIRONOLACTONE [Concomitant]
     Route: 048
     Dates: start: 20090101

REACTIONS (4)
  - RENAL NEOPLASM [None]
  - BLOOD CHOLESTEROL INCREASED [None]
  - BLOOD TRIGLYCERIDES INCREASED [None]
  - WRONG TECHNIQUE IN DRUG USAGE PROCESS [None]
